FAERS Safety Report 14888808 (Version 8)
Quarter: 2020Q2

REPORT INFORMATION
  Report Type: Report from Study
  Country: None (occurrence: US)
  Receive Date: 20180513
  Receipt Date: 20200603
  Transmission Date: 20200713
  Serious: Yes (Other)
  Sender: FDA-Public Use
  Company Number: US-ABBVIE-18K-163-2318468-00

PATIENT
  Age: 57 Year
  Sex: Female
  Weight: 54.48 kg

DRUGS (11)
  1. HUMIRA [Suspect]
     Active Substance: ADALIMUMAB
     Indication: ANKYLOSING SPONDYLITIS
     Route: 058
     Dates: start: 2013, end: 20130918
  2. HUMIRA [Suspect]
     Active Substance: ADALIMUMAB
     Indication: ARTHRITIS
  3. ASPIRIN. [Concomitant]
     Active Substance: ASPIRIN
     Indication: PRODUCT USED FOR UNKNOWN INDICATION
  4. TYLENOL [Concomitant]
     Active Substance: ACETAMINOPHEN
     Indication: PRODUCT USED FOR UNKNOWN INDICATION
  5. HUMIRA [Suspect]
     Active Substance: ADALIMUMAB
     Indication: RHEUMATOID ARTHRITIS
     Route: 058
     Dates: start: 201309, end: 201807
  6. TIZANIDINE. [Concomitant]
     Active Substance: TIZANIDINE
     Indication: PRODUCT USED FOR UNKNOWN INDICATION
  7. METHADONE [Concomitant]
     Active Substance: METHADONE HYDROCHLORIDE
     Indication: PAIN
  8. CIMZIA [Suspect]
     Active Substance: CERTOLIZUMAB PEGOL
     Indication: PRODUCT USED FOR UNKNOWN INDICATION
     Route: 065
  9. HUMIRA [Suspect]
     Active Substance: ADALIMUMAB
     Indication: COLITIS ULCERATIVE
  10. POLYURETHANE [Suspect]
     Active Substance: POLYURETHANE
     Indication: PRODUCT USED FOR UNKNOWN INDICATION
     Route: 065
  11. CYMBALTA [Concomitant]
     Active Substance: DULOXETINE HYDROCHLORIDE
     Indication: DEPRESSION

REACTIONS (35)
  - Gastrointestinal oedema [Unknown]
  - Depression [Recovering/Resolving]
  - Alopecia [Unknown]
  - Hypertension [Unknown]
  - Back disorder [Recovering/Resolving]
  - Gallbladder polyp [Unknown]
  - Haemorrhagic diathesis [Recovered/Resolved]
  - Device issue [Recovered/Resolved]
  - Drug ineffective [Not Recovered/Not Resolved]
  - Blood pressure abnormal [Unknown]
  - Diarrhoea [Unknown]
  - Malaise [Unknown]
  - Blister [Unknown]
  - Injection site pain [Unknown]
  - Arthralgia [Unknown]
  - Incorrect dose administered [Recovered/Resolved]
  - Musculoskeletal disorder [Unknown]
  - Weight decreased [Recovered/Resolved]
  - Colitis [Unknown]
  - Arthralgia [Unknown]
  - Rheumatoid arthritis [Unknown]
  - Malaise [Recovered/Resolved]
  - Blood viscosity decreased [Recovered/Resolved]
  - Wrong product administered [Recovered/Resolved]
  - Gastrointestinal disorder [Unknown]
  - Fall [Recovered/Resolved]
  - Artificial crown procedure [Unknown]
  - Vomiting [Not Recovered/Not Resolved]
  - Chemical poisoning [Unknown]
  - Dizziness [Unknown]
  - Insomnia [Unknown]
  - Wound [Unknown]
  - Nausea [Recovering/Resolving]
  - Groin pain [Unknown]
  - Back pain [Unknown]

NARRATIVE: CASE EVENT DATE: 201702
